FAERS Safety Report 13423259 (Version 1)
Quarter: 2017Q2

REPORT INFORMATION
  Report Type: Report from Study
  Country: JP (occurrence: JP)
  Receive Date: 20170410
  Receipt Date: 20170410
  Transmission Date: 20170830
  Serious: Yes (Other)
  Sender: FDA-Public Use
  Company Number: JP-VIFOR (INTERNATIONAL) INC.-VIT-2017-03736

PATIENT
  Age: 40 Year
  Sex: Female
  Weight: 54.8 kg

DRUGS (12)
  1. FOSRENOL [Concomitant]
     Active Substance: LANTHANUM CARBONATE
     Indication: HYPERPHOSPHATAEMIA
     Route: 048
     Dates: start: 20160919
  2. NESP [Concomitant]
     Active Substance: DARBEPOETIN ALFA
     Dates: start: 20160916, end: 20160916
  3. SYMNPHASE T28 [Concomitant]
     Dosage: 1 TABLET
     Route: 048
  4. ALFACALCIDOL [Concomitant]
     Active Substance: ALFACALCIDOL
     Route: 048
  5. AVAPRO [Concomitant]
     Active Substance: IRBESARTAN
     Dates: start: 20160916, end: 20160916
  6. DICLOFENAC SODIUM. [Concomitant]
     Active Substance: DICLOFENAC SODIUM
     Dates: start: 20160916, end: 20160916
  7. VELPHORO [Suspect]
     Active Substance: FERRIC OXYHYDROXIDE
     Indication: HYPERPHOSPHATAEMIA
     Route: 048
     Dates: start: 20160725, end: 20160925
  8. NESP [Concomitant]
     Active Substance: DARBEPOETIN ALFA
     Dates: end: 20160909
  9. AVAPRO [Concomitant]
     Active Substance: IRBESARTAN
     Route: 048
     Dates: start: 20160919
  10. WARFARIN POTASSIUM [Concomitant]
     Active Substance: WARFARIN POTASSIUM
     Route: 048
  11. SENNOSIDE A+B/CALCIUM [Concomitant]
     Route: 048
  12. DICLOFENAC SODIUM. [Concomitant]
     Active Substance: DICLOFENAC SODIUM
     Route: 048

REACTIONS (2)
  - Polycythaemia [Recovered/Resolved]
  - Haemoglobin increased [Recovered/Resolved]

NARRATIVE: CASE EVENT DATE: 20160905
